FAERS Safety Report 8350665-7 (Version None)
Quarter: 2012Q2

REPORT INFORMATION
  Report Type: 
  Country: None (occurrence: None)
  Receive Date: 20120510
  Receipt Date: 20120504
  Transmission Date: 20120825
  Serious: Yes (Other)
  Sender: FDA-Public Use
  Company Number: US-TEVA-336837USA

PATIENT
  Age: 36 Year
  Sex: Male
  Weight: 122.45 kg

DRUGS (1)
  1. CETIRIZINE HCL AND PSEUDOEPHEDRINE [Suspect]
     Indication: RESPIRATORY TRACT CONGESTION
     Dosage: 120 MG/5 MG
     Route: 048
     Dates: start: 20120425, end: 20120426

REACTIONS (2)
  - ANOSMIA [None]
  - AGEUSIA [None]
